FAERS Safety Report 23356992 (Version 5)
Quarter: 2024Q1

REPORT INFORMATION
  Report Type: Spontaneous
  Country: DE (occurrence: DE)
  Receive Date: 20240102
  Receipt Date: 20240229
  Transmission Date: 20240410
  Serious: Yes (Other)
  Sender: FDA-Public Use
  Company Number: DE-GLAXOSMITHKLINE-DECH2023EME049945

PATIENT
  Age: 82 Year
  Sex: Male

DRUGS (29)
  1. TERBINAFINE HYDROCHLORIDE [Suspect]
     Active Substance: TERBINAFINE HYDROCHLORIDE
     Indication: Body tinea
     Dosage: 250 MG, QW
     Route: 065
     Dates: start: 20180401, end: 20200611
  2. TERBINAFINE HYDROCHLORIDE [Suspect]
     Active Substance: TERBINAFINE HYDROCHLORIDE
     Indication: Onychomycosis
     Dosage: 250 MG, 2/WEEK
     Route: 061
     Dates: start: 2012, end: 201306
  3. TERBINAFINE HYDROCHLORIDE [Suspect]
     Active Substance: TERBINAFINE HYDROCHLORIDE
     Dosage: 250 MG, EVERY 3 DAYS
     Route: 065
     Dates: start: 20210207
  4. TERBINAFINE HYDROCHLORIDE [Suspect]
     Active Substance: TERBINAFINE HYDROCHLORIDE
     Dosage: 250 MG, QD
     Route: 065
     Dates: start: 201704, end: 201705
  5. TERBINAFINE HYDROCHLORIDE [Suspect]
     Active Substance: TERBINAFINE HYDROCHLORIDE
     Dosage: 250 MG, QW
     Route: 065
     Dates: start: 201504, end: 201611
  6. FLUCONAZOLE [Suspect]
     Active Substance: FLUCONAZOLE
     Indication: Body tinea
     Dosage: 50 MG, QD, ONCE
     Route: 065
     Dates: start: 201306, end: 201504
  7. FLUCONAZOLE [Suspect]
     Active Substance: FLUCONAZOLE
     Dosage: 200 MG, QW
     Route: 065
     Dates: start: 201504, end: 201611
  8. FLUCONAZOLE [Suspect]
     Active Substance: FLUCONAZOLE
     Dosage: 50 MG, ONCE
     Route: 065
     Dates: start: 20210207
  9. VORICONAZOLE [Suspect]
     Active Substance: VORICONAZOLE
     Indication: Body tinea
     Dosage: 400 MG, QW
     Route: 065
     Dates: start: 201711, end: 201712
  10. VORICONAZOLE [Suspect]
     Active Substance: VORICONAZOLE
     Indication: Trichophytosis
     Dosage: 400 MG, QD
     Route: 065
     Dates: start: 201708, end: 201710
  11. VORICONAZOLE [Suspect]
     Active Substance: VORICONAZOLE
     Dosage: 200 MG
     Route: 065
     Dates: start: 201711, end: 201712
  12. ITRACONAZOLE [Suspect]
     Active Substance: ITRACONAZOLE
     Indication: Body tinea
     Dosage: 50 MG, Q24H
     Route: 065
     Dates: start: 201611, end: 201703
  13. ITRACONAZOLE [Suspect]
     Active Substance: ITRACONAZOLE
     Dosage: 50 MG, BID
     Route: 065
     Dates: start: 20210315
  14. ITRACONAZOLE [Suspect]
     Active Substance: ITRACONAZOLE
     Dosage: 50 MG, TWICE WEEKLY ADMINISTRATION OF 2X 50 MG
     Route: 065
     Dates: start: 20210315
  15. ITRACONAZOLE [Suspect]
     Active Substance: ITRACONAZOLE
     Dosage: 14 DAYS 2X 1 CAPSULE DAILY
     Route: 065
  16. ITRACONAZOLE [Suspect]
     Active Substance: ITRACONAZOLE
     Dosage: 50 MG, 5 DAYS A WEEK
     Route: 065
  17. ITRACONAZOLE [Suspect]
     Active Substance: ITRACONAZOLE
     Dosage: UNK
     Route: 065
  18. BIFONAZOLE [Concomitant]
     Active Substance: BIFONAZOLE
     Indication: Nail operation
     Dosage: 1 DF, QD
     Route: 061
     Dates: start: 201504, end: 201611
  19. BIFONAZOLE [Concomitant]
     Active Substance: BIFONAZOLE
     Indication: Body tinea
     Dosage: 1 PERCENT
     Route: 061
     Dates: start: 201504, end: 201611
  20. BIFONAZOLE [Concomitant]
     Active Substance: BIFONAZOLE
     Indication: Product used for unknown indication
     Dosage: 1 DF, QD
     Route: 061
     Dates: start: 20200611
  21. BIFONAZOLE [Concomitant]
     Active Substance: BIFONAZOLE
     Indication: Body tinea
     Dosage: UNK, 1 PERCENT
     Route: 065
     Dates: start: 201504, end: 201611
  22. BIFONAZOLE [Concomitant]
     Active Substance: BIFONAZOLE
     Indication: Body tinea
  23. CICLOPIROX OLAMINE [Concomitant]
     Active Substance: CICLOPIROX OLAMINE
     Indication: Body tinea
     Dosage: 1 DF, QD
     Route: 065
     Dates: start: 201504, end: 201611
  24. CICLOPIROX OLAMINE [Concomitant]
     Active Substance: CICLOPIROX OLAMINE
     Indication: Body tinea
     Dosage: 1 DF, QD
     Route: 061
     Dates: start: 20200611
  25. MICONAZOLE NITRATE [Concomitant]
     Active Substance: MICONAZOLE NITRATE
     Indication: Product used for unknown indication
     Dosage: UNK
     Route: 065
  26. UREA [Concomitant]
     Active Substance: UREA
     Indication: Body tinea
     Dosage: 40 %
     Route: 065
     Dates: start: 201504, end: 201611
  27. UREA [Concomitant]
     Active Substance: UREA
     Indication: Nail operation
     Dosage: 10 %
     Route: 065
     Dates: start: 20201106
  28. UREA [Concomitant]
     Active Substance: UREA
     Indication: Body tinea
  29. CLOTRIMAZOLE;TRIAMCINOLONE [Concomitant]
     Indication: Body tinea
     Dosage: UNK, IN ACETONATUM UNGUENTUM BASALIS DAC
     Route: 065
     Dates: start: 20210207

REACTIONS (13)
  - Drug intolerance [Unknown]
  - Drug ineffective [Unknown]
  - Drug resistance [Unknown]
  - Hepatic enzyme increased [Unknown]
  - Photosensitivity reaction [Unknown]
  - Pruritus [Unknown]
  - Dermatitis [Unknown]
  - Disease progression [Unknown]
  - Adverse event [Unknown]
  - Arthralgia [Unknown]
  - Adverse drug reaction [Unknown]
  - Off label use [Unknown]
  - Drug effective for unapproved indication [Unknown]

NARRATIVE: CASE EVENT DATE: 20170101
